FAERS Safety Report 17166434 (Version 1)
Quarter: 2019Q4

REPORT INFORMATION
  Report Type: Spontaneous
  Country: US (occurrence: US)
  Receive Date: 20191217
  Receipt Date: 20191217
  Transmission Date: 20200122
  Serious: Yes (Death, Other)
  Sender: FDA-Public Use
  Company Number: US-PURDUE PHARMA-USA-2019-0149381

PATIENT
  Age: 80 Year
  Sex: Female
  Weight: 53.52 kg

DRUGS (1)
  1. OXYCODONE HYDROCHLORIDE (SIMILAR TO NDA 22-272) [Suspect]
     Active Substance: OXYCODONE HYDROCHLORIDE
     Indication: PAIN
     Route: 048

REACTIONS (6)
  - Failure to thrive [Fatal]
  - Somnolence [Unknown]
  - Febrile infection [Unknown]
  - Abnormal behaviour [Unknown]
  - Hallucination [Unknown]
  - Hypophagia [Unknown]

NARRATIVE: CASE EVENT DATE: 20191106
